FAERS Safety Report 8595768-7 (Version None)
Quarter: 2012Q3

REPORT INFORMATION
  Report Type: 
  Country: None (occurrence: None)
  Receive Date: 20120815
  Receipt Date: 20120802
  Transmission Date: 20120928
  Serious: Yes (Hospitalization)
  Sender: FDA-Public Use
  Company Number: US-ELI_LILLY_AND_COMPANY-US201208001673

PATIENT

DRUGS (1)
  1. HUMULIN N [Suspect]
     Indication: TYPE 2 DIABETES MELLITUS
     Dosage: 5 U, TID
     Dates: start: 20120619

REACTIONS (8)
  - ABDOMINAL DISCOMFORT [None]
  - CHEST PAIN [None]
  - DYSPEPSIA [None]
  - BOWEL MOVEMENT IRREGULARITY [None]
  - FLATULENCE [None]
  - ABDOMINAL DISTENSION [None]
  - BLOOD GLUCOSE INCREASED [None]
  - DRUG INEFFECTIVE [None]
